FAERS Safety Report 8496353-8 (Version None)
Quarter: 2012Q3

REPORT INFORMATION
  Report Type: 
  Country: None (occurrence: None)
  Receive Date: 20120709
  Receipt Date: 20120625
  Transmission Date: 20120928
  Serious: Yes (Life-Threatening, Hospitalization)
  Sender: FDA-Public Use
  Company Number: AU-MYLANLABS-2012S1013184

PATIENT
  Age: 32 Year
  Sex: Female

DRUGS (2)
  1. MESALAMINE [Concomitant]
     Indication: COLITIS ULCERATIVE
     Dosage: THRICE WEEKLY
     Route: 054
  2. AZATHIOPRINE [Suspect]
     Indication: COLITIS ULCERATIVE
     Dosage: 100MG DAILY
     Route: 065

REACTIONS (4)
  - CYTOMEGALOVIRUS INFECTION [None]
  - MULTI-ORGAN DISORDER [None]
  - PNEUMONITIS [None]
  - HISTIOCYTOSIS HAEMATOPHAGIC [None]
